FAERS Safety Report 9144001 (Version 1)
Quarter: 2013Q1

REPORT INFORMATION
  Report Type: Spontaneous
  Country: JP (occurrence: JP)
  Receive Date: 20130306
  Receipt Date: 20130306
  Transmission Date: 20140127
  Serious: Yes (Other)
  Sender: FDA-Public Use
  Company Number: JP-PFIZER INC-2013076594

PATIENT
  Age: 96 Year
  Sex: Female

DRUGS (2)
  1. LYRICA [Suspect]
     Indication: PAIN IN EXTREMITY
     Dosage: UNK
     Route: 048
  2. LYRICA [Suspect]
     Indication: HYPOAESTHESIA

REACTIONS (3)
  - Renal impairment [Unknown]
  - Gait disturbance [Unknown]
  - Limb discomfort [Unknown]
